FAERS Safety Report 14195694 (Version 1)
Quarter: 2017Q4

REPORT INFORMATION
  Report Type: Spontaneous
  Country: US (occurrence: US)
  Receive Date: 20171116
  Receipt Date: 20171116
  Transmission Date: 20180321
  Serious: No
  Sender: FDA-Public Use
  Company Number: US-BAUSCH-BL-2017-010148

PATIENT
  Sex: Female
  Weight: 64.92 kg

DRUGS (1)
  1. XENAZINE [Suspect]
     Active Substance: TETRABENAZINE
     Indication: TOURETTE^S DISORDER
     Dosage: THREE TABLETS THREE TIMES DAILY
     Route: 048
     Dates: start: 201609

REACTIONS (5)
  - Drug ineffective [Unknown]
  - Off label use [Unknown]
  - Irritability [Unknown]
  - Anxiety [Unknown]
  - Prescribed overdose [Unknown]
